FAERS Safety Report 11725915 (Version 6)
Quarter: 2016Q2

REPORT INFORMATION
  Report Type: Report from Study
  Country: US (occurrence: US)
  Receive Date: 20151112
  Receipt Date: 20160426
  Transmission Date: 20160815
  Serious: Yes (Other)
  Sender: FDA-Public Use
  Company Number: US-AMGEN-USASL2015118209

PATIENT
  Age: 61 Year
  Sex: Male

DRUGS (2)
  1. ENBREL [Suspect]
     Active Substance: ETANERCEPT
     Dosage: UNK
     Route: 065
     Dates: start: 201512
  2. ENBREL [Suspect]
     Active Substance: ETANERCEPT
     Indication: RHEUMATOID ARTHRITIS
     Dosage: 50 MG, WEEKLY
     Route: 065
     Dates: start: 20151024

REACTIONS (12)
  - Varicose vein [Unknown]
  - Pain [Unknown]
  - Headache [Not Recovered/Not Resolved]
  - Blood pressure diastolic increased [Not Recovered/Not Resolved]
  - Urinary tract infection [Recovered/Resolved]
  - Drug effect incomplete [Unknown]
  - Adverse drug reaction [Unknown]
  - Gastrointestinal pain [Not Recovered/Not Resolved]
  - Hypertension [Unknown]
  - Unevaluable event [Unknown]
  - Inappropriate schedule of drug administration [Unknown]
  - Infection [Unknown]

NARRATIVE: CASE EVENT DATE: 2015
